FAERS Safety Report 26021014 (Version 1)
Quarter: 2025Q4

REPORT INFORMATION
  Report Type: Spontaneous
  Country: US (occurrence: None)
  Receive Date: 20251107
  Receipt Date: 20251107
  Transmission Date: 20260117
  Serious: Yes (Hospitalization)
  Sender: FDA-CTU
  Company Number: None

PATIENT
  Age: 62 Year
  Sex: Female

DRUGS (2)
  1. INLYTA [Suspect]
     Active Substance: AXITINIB
     Indication: Renal cancer
     Dosage: 5 MG TWICE A DAY ORAL
     Route: 048
  2. INLYTA [Suspect]
     Active Substance: AXITINIB
     Indication: Metastases to lung

REACTIONS (2)
  - Dyspnoea [None]
  - Hypertension [None]

NARRATIVE: CASE EVENT DATE: 20251011
